FAERS Safety Report 5872088-2 (Version None)
Quarter: 2008Q3

REPORT INFORMATION
  Report Type: 
  Country: None (occurrence: None)
  Receive Date: 20080905
  Receipt Date: 20080826
  Transmission Date: 20090109
  Serious: Yes (Hospitalization)
  Sender: FDA-Public Use
  Company Number: A0745817A

PATIENT
  Sex: Female

DRUGS (4)
  1. COMPAZINE [Suspect]
     Route: 065
  2. PHENERGAN HCL [Suspect]
     Route: 065
  3. PERCOCET [Suspect]
     Route: 048
  4. AMBIEN CR [Suspect]

REACTIONS (2)
  - DRUG TOXICITY [None]
  - OVERDOSE [None]
